FAERS Safety Report 20377098 (Version 2)
Quarter: 2022Q1

REPORT INFORMATION
  Report Type: Spontaneous
  Country: US (occurrence: US)
  Receive Date: 20220125
  Receipt Date: 20220328
  Transmission Date: 20220423
  Serious: No
  Sender: FDA-Public Use
  Company Number: US-ALXN-A202200856

PATIENT
  Sex: Female

DRUGS (1)
  1. SOLIRIS [Suspect]
     Active Substance: ECULIZUMAB
     Indication: Demyelination
     Dosage: 1200 MG, Q2W
     Route: 042
     Dates: start: 202006

REACTIONS (2)
  - Catheter site rash [Unknown]
  - Off label use [Unknown]
